FAERS Safety Report 23903213 (Version 1)
Quarter: 2024Q2

REPORT INFORMATION
  Report Type: Spontaneous
  Country: NL (occurrence: NL)
  Receive Date: 20240527
  Receipt Date: 20240527
  Transmission Date: 20240716
  Serious: Yes (Other)
  Sender: FDA-Public Use
  Company Number: NL-GLANDPHARMA-NL-2024GLNLIT00189

PATIENT
  Age: 86 Year
  Sex: Male

DRUGS (7)
  1. AMIODARONE HYDROCHLORIDE [Suspect]
     Active Substance: AMIODARONE HYDROCHLORIDE
     Indication: Ventricular tachycardia
     Route: 065
     Dates: start: 202105, end: 202204
  2. AMIODARONE HYDROCHLORIDE [Suspect]
     Active Substance: AMIODARONE HYDROCHLORIDE
     Route: 065
     Dates: start: 202105, end: 202204
  3. AMIODARONE HYDROCHLORIDE [Suspect]
     Active Substance: AMIODARONE HYDROCHLORIDE
     Route: 065
     Dates: start: 202105, end: 202204
  4. EPLERENONE [Concomitant]
     Active Substance: EPLERENONE
     Indication: Proteinuria
     Route: 065
  5. QUINAPRIL [Concomitant]
     Active Substance: QUINAPRIL
     Indication: Proteinuria
     Route: 065
  6. PERINDOPRIL [Concomitant]
     Active Substance: PERINDOPRIL
     Indication: Enzyme inhibition
     Route: 065
  7. BUMETANIDE [Concomitant]
     Active Substance: BUMETANIDE
     Route: 065

REACTIONS (2)
  - Renal phospholipidosis [Recovering/Resolving]
  - Renal impairment [Recovering/Resolving]
